FAERS Safety Report 5044397-0 (Version None)
Quarter: 2006Q2

REPORT INFORMATION
  Report Type: 
  Country: None (occurrence: None)
  Receive Date: 20060629
  Receipt Date: 20060524
  Transmission Date: 20061013
  Serious: No
  Sender: FDA-Public Use
  Company Number: 2006068396

PATIENT
  Age: 22 Year
  Sex: Female
  Weight: 60 kg

DRUGS (4)
  1. VIRACEPT [Suspect]
     Indication: HIV INFECTION
     Dosage: 500 MG (ORAL)
     Route: 048
     Dates: start: 20060505, end: 20060519
  2. BIOVIR (LAMIVUDINE, ZIDOVUDINE) [Concomitant]
  3. POLYVITAMIN (VITAMIN NOS) [Concomitant]
  4. FERROUS SULFATE TAB [Concomitant]

REACTIONS (2)
  - DRUG EXPOSURE DURING PREGNANCY [None]
  - INTRA-UTERINE DEATH [None]
